FAERS Safety Report 8806105 (Version 1)
Quarter: 2012Q4

REPORT INFORMATION
  Report Type: Spontaneous
  Country: DE (occurrence: None)
  Receive Date: 20120918
  Receipt Date: 20120918
  Transmission Date: 20130627
  Serious: Yes (Hospitalization, Other)
  Sender: FDA-Public Use
  Company Number: DSA_59547_2012

PATIENT
  Age: 21 Year
  Sex: Male

DRUGS (3)
  1. ELONTRIL [Suspect]
     Route: 048
  2. REVILOR [Suspect]
     Route: 048
  3. ZYPREXA [Suspect]
     Route: 048

REACTIONS (3)
  - Renal failure [None]
  - Asthenia [None]
  - Metabolic acidosis [None]
